FAERS Safety Report 21684564 (Version 2)
Quarter: 2023Q1

REPORT INFORMATION
  Report Type: Spontaneous
  Country: AT (occurrence: AT)
  Receive Date: 20221205
  Receipt Date: 20230103
  Transmission Date: 20230418
  Serious: Yes (Other)
  Sender: FDA-Public Use
  Company Number: AT-GILEAD-2022-0604557

PATIENT
  Age: 38 Year
  Sex: Female

DRUGS (1)
  1. TRODELVY [Suspect]
     Active Substance: SACITUZUMAB GOVITECAN-HZIY
     Indication: Breast cancer metastatic
     Dosage: UNK
     Route: 065
     Dates: start: 202210

REACTIONS (3)
  - Depression [Recovering/Resolving]
  - Personality change [Recovering/Resolving]
  - Disease progression [Unknown]
